FAERS Safety Report 4833893-4 (Version None)
Quarter: 2005Q4

REPORT INFORMATION
  Report Type: 
  Country: None (occurrence: None)
  Receive Date: 20051122
  Receipt Date: 20051118
  Transmission Date: 20060501
  Serious: Yes (Death, Hospitalization)
  Sender: FDA-Public Use
  Company Number: ZA-BOEHRINGER INGELHEIM PHARMACEUTICALS, INC.-2005-BP-20418BP

PATIENT
  Sex: Female

DRUGS (5)
  1. VIRAMUNE [Suspect]
     Indication: HIV INFECTION
     Route: 048
     Dates: start: 20050317, end: 20051106
  2. STAVUDINE [Suspect]
     Indication: HIV INFECTION
     Route: 048
     Dates: start: 20050317, end: 20051106
  3. LAMIVUDINE [Suspect]
     Indication: HIV INFECTION
     Route: 048
     Dates: start: 20050317, end: 20051106
  4. BACTRIM [Concomitant]
     Dates: start: 20030729, end: 20051106
  5. VITAMINS [Concomitant]
     Dates: start: 20050729, end: 20051106

REACTIONS (1)
  - LACTIC ACIDOSIS [None]
